FAERS Safety Report 7035357-9 (Version None)
Quarter: 2010Q4

REPORT INFORMATION
  Report Type: 
  Country: None (occurrence: None)
  Receive Date: 20101008
  Receipt Date: 20101004
  Transmission Date: 20110411
  Serious: Yes (Hospitalization)
  Sender: FDA-Public Use
  Company Number: US-KINGPHARMUSA00001-K200900406

PATIENT
  Age: 87 Year
  Sex: Female

DRUGS (13)
  1. ALTACE [Suspect]
     Indication: HYPERTENSION
     Dosage: 5 MG, QD
     Route: 048
     Dates: start: 20051201
  2. AMLODIPINE [Suspect]
     Indication: HYPERTENSION
     Dosage: 2.5 MG, QD
     Route: 048
     Dates: start: 20080801
  3. HYDROCHLOROTHIAZIDE [Suspect]
     Indication: HYPERTENSION
     Dosage: 25 MG, QD
     Route: 048
     Dates: start: 20051201
  4. METOPROLOL TARTRATE [Suspect]
     Indication: HYPERTENSION
     Dosage: 95 MG, BID
     Route: 048
     Dates: start: 20051201, end: 20081011
  5. METOPROLOL TARTRATE [Suspect]
     Dosage: 95 MG, QD
     Route: 048
     Dates: start: 20081001
  6. ALLOPURINOL MERCK [Concomitant]
     Indication: HYPERURICAEMIA
     Dosage: 100 MG, UNK
     Route: 048
  7. CIPRALEX                           /01588501/ [Concomitant]
     Indication: DEPRESSION
     Dosage: 10 MG, QD
     Route: 048
  8. ISCOVER [Concomitant]
     Indication: AORTIC STENOSIS
     Dosage: 75 MG, UNK
     Route: 048
     Dates: start: 20051201
  9. L-THYROXINE                        /00068001/ [Concomitant]
     Indication: HYPOTHYROIDISM
     Dosage: 75 MCG, UNK
     Route: 048
  10. ESOMEPRAZOLE [Concomitant]
     Indication: PROPHYLAXIS AGAINST GASTROINTESTINAL ULCER
     Dosage: 20 MG, UNK
     Route: 048
     Dates: start: 20051201
  11. SIMVASTATIN [Concomitant]
     Indication: HYPERLIPIDAEMIA
     Dosage: 40 MG, UNK
     Route: 048
     Dates: start: 20051201
  12. SPASMEX                            /00376202/ [Concomitant]
     Indication: URGE INCONTINENCE
     Dosage: 2.5 MG, UNK
     Route: 048
     Dates: end: 20081012
  13. VESICARE [Concomitant]
     Indication: URGE INCONTINENCE
     Dosage: 20 MG, UNK
     Route: 048
     Dates: end: 20081012

REACTIONS (3)
  - HYPOTENSION [None]
  - SINUS BRADYCARDIA [None]
  - SYNCOPE [None]
